FAERS Safety Report 7801457-6 (Version None)
Quarter: 2011Q4

REPORT INFORMATION
  Report Type: 
  Country: None (occurrence: None)
  Receive Date: 20111006
  Receipt Date: 20111006
  Transmission Date: 20120403
  Serious: Yes (Hospitalization)
  Sender: FDA-Public Use
  Company Number: None

PATIENT
  Age: 64 Year
  Sex: Female
  Weight: 70.9 kg

DRUGS (7)
  1. XANAX XR [Suspect]
     Indication: ANXIETY
     Dosage: 3 MG BID PO CHRONIC W/ RECENT INCREASE
     Route: 048
  2. ZYPREXA [Concomitant]
  3. FENTANYL-100 [Suspect]
     Indication: PAIN
     Dosage: 25 MCG Q 72 H TOPICAL
     Route: 061
  4. FENTANYL [Concomitant]
  5. GEODON [Concomitant]
  6. LYRICA [Concomitant]
  7. CYMBALTA [Concomitant]

REACTIONS (1)
  - MENTAL STATUS CHANGES [None]
